FAERS Safety Report 9688198 (Version 1)
Quarter: 2013Q4

REPORT INFORMATION
  Report Type: Spontaneous
  Country: US (occurrence: None)
  Receive Date: 20131113
  Receipt Date: 20131113
  Transmission Date: 20140711
  Serious: Yes (Hospitalization, Disabling)
  Sender: FDA-Public Use
  Company Number: None

PATIENT
  Age: 40 Year
  Sex: Female
  Weight: 81.65 kg

DRUGS (3)
  1. VIRACEPT [Suspect]
     Indication: PRODUCT CONTAMINATION
     Dates: start: 20130313, end: 20130401
  2. VIRACEPT [Suspect]
     Indication: TUBERCULIN TEST
     Dates: start: 20130313, end: 20130401
  3. LAMIVUDINE [Suspect]

REACTIONS (7)
  - Nausea [None]
  - Asthenia [None]
  - Fatigue [None]
  - Myalgia [None]
  - Arthralgia [None]
  - Alopecia [None]
  - Arthropathy [None]
